FAERS Safety Report 4523536-1 (Version None)
Quarter: 2004Q4

REPORT INFORMATION
  Report Type: 
  Country: None (occurrence: None)
  Receive Date: 20041117
  Receipt Date: 20040802
  Transmission Date: 20050328
  Serious: Yes (Hospitalization)
  Sender: FDA-Public Use
  Company Number: US-JNJFOC-20040801641

PATIENT
  Age: 42 Year
  Sex: Female
  Weight: 97.0698 kg

DRUGS (5)
  1. LEVAQUIN [Suspect]
     Indication: LIMB OPERATION
     Dosage: INTRAVENOUS
  2. SINGULAIR (MONTELUKAST SODUM) TABLET [Concomitant]
  3. ALLERGA D (ALLEGRA-D) [Concomitant]
  4. STEROID (CORTICOSTEROID NOS) [Concomitant]
  5. PROVENTIL [Concomitant]

REACTIONS (2)
  - INJECTION SITE REACTION [None]
  - URTICARIA [None]
